FAERS Safety Report 5267682-6 (Version None)
Quarter: 2007Q1

REPORT INFORMATION
  Report Type: 
  Country: None (occurrence: None)
  Receive Date: 20070316
  Receipt Date: 20070309
  Transmission Date: 20070707
  Serious: Yes (Hospitalization, Other)
  Sender: FDA-Public Use
  Company Number: US-PFIZER INC-2007016580

PATIENT
  Sex: Male

DRUGS (2)
  1. ZOLOFT [Suspect]
     Dosage: TEXT:UNKNOWN
  2. AMBIEN [Suspect]
     Dosage: TEXT:UNKNOWN

REACTIONS (1)
  - GUILLAIN-BARRE SYNDROME [None]
